FAERS Safety Report 6672297-9 (Version None)
Quarter: 2010Q2

REPORT INFORMATION
  Report Type: 
  Country: None (occurrence: None)
  Receive Date: 20100408
  Receipt Date: 20100402
  Transmission Date: 20101027
  Serious: Yes (Other)
  Sender: FDA-Public Use
  Company Number: US-ASTRAZENECA-2006UW04578

PATIENT
  Age: 17639 Day
  Sex: Male
  Weight: 103.4 kg

DRUGS (36)
  1. SEROQUEL [Suspect]
     Indication: PSYCHOTIC DISORDER
     Dosage: 100-400 MG DAILY
     Route: 048
     Dates: start: 20000622
  2. SEROQUEL [Suspect]
     Indication: SCHIZOPHRENIA
     Dosage: 100-400 MG DAILY
     Route: 048
     Dates: start: 20000622
  3. SEROQUEL [Suspect]
     Indication: NERVOUS SYSTEM DISORDER
     Dosage: 100-400 MG DAILY
     Route: 048
     Dates: start: 20000622
  4. SEROQUEL [Suspect]
     Indication: SEDATION
     Dosage: 100-400 MG DAILY
     Route: 048
     Dates: start: 20000622
  5. SEROQUEL [Suspect]
     Dosage: 150 MG - 350 MG
     Route: 048
     Dates: start: 20000627, end: 20001001
  6. SEROQUEL [Suspect]
     Dosage: 150 MG - 350 MG
     Route: 048
     Dates: start: 20000627, end: 20001001
  7. SEROQUEL [Suspect]
     Dosage: 150 MG - 350 MG
     Route: 048
     Dates: start: 20000627, end: 20001001
  8. SEROQUEL [Suspect]
     Dosage: 150 MG - 350 MG
     Route: 048
     Dates: start: 20000627, end: 20001001
  9. SEROQUEL [Suspect]
     Dosage: 100 MG - 200 MG
     Route: 048
     Dates: start: 20040316, end: 20070801
  10. SEROQUEL [Suspect]
     Dosage: 100 MG - 200 MG
     Route: 048
     Dates: start: 20040316, end: 20070801
  11. SEROQUEL [Suspect]
     Dosage: 100 MG - 200 MG
     Route: 048
     Dates: start: 20040316, end: 20070801
  12. SEROQUEL [Suspect]
     Dosage: 100 MG - 200 MG
     Route: 048
     Dates: start: 20040316, end: 20070801
  13. RISPERDAL [Suspect]
     Indication: PSYCHOTIC DISORDER
     Dosage: 2-4 MG
     Route: 048
     Dates: start: 20001025, end: 20040305
  14. RISPERDAL [Suspect]
     Indication: SCHIZOPHRENIA
     Dosage: 2-4 MG
     Route: 048
     Dates: start: 20001025, end: 20040305
  15. RISPERDAL [Suspect]
     Indication: NERVOUS SYSTEM DISORDER
     Dosage: 2-4 MG
     Route: 048
     Dates: start: 20001025, end: 20040305
  16. RISPERDAL [Suspect]
     Dosage: 3 MG AND 7 MG
     Route: 048
     Dates: start: 20010601, end: 20011001
  17. RISPERDAL [Suspect]
     Dosage: 3 MG AND 7 MG
     Route: 048
     Dates: start: 20010601, end: 20011001
  18. RISPERDAL [Suspect]
     Dosage: 3 MG AND 7 MG
     Route: 048
     Dates: start: 20010601, end: 20011001
  19. RISPERDAL [Suspect]
     Route: 048
     Dates: start: 20040701
  20. RISPERDAL [Suspect]
     Route: 048
     Dates: start: 20040701
  21. RISPERDAL [Suspect]
     Route: 048
     Dates: start: 20040701
  22. RISPERDAL [Suspect]
     Route: 048
     Dates: start: 20060101
  23. RISPERDAL [Suspect]
     Route: 048
     Dates: start: 20060101
  24. RISPERDAL [Suspect]
     Route: 048
     Dates: start: 20060101
  25. ABILIFY [Concomitant]
     Dates: start: 20030101, end: 20070101
  26. HALDOL [Concomitant]
     Dates: start: 19850101, end: 19900101
  27. NAVANE [Concomitant]
  28. VICODIN [Concomitant]
     Indication: PROCTALGIA
     Dosage: AS REQUIRED
     Dates: start: 20030210
  29. ATIVAN [Concomitant]
     Dosage: 2 MG
     Route: 030
     Dates: start: 20000609
  30. LITHIUM CARBONATE [Concomitant]
     Dosage: 300-600 MG DAILY
  31. METFORMIN HCL [Concomitant]
  32. GABAPENTIN [Concomitant]
     Route: 048
     Dates: start: 20060502
  33. GABAPENTIN [Concomitant]
     Dates: start: 20090217
  34. CELEBREX [Concomitant]
     Indication: ARTHRALGIA
     Route: 048
     Dates: start: 20060502
  35. ZYPREXA [Concomitant]
     Dates: start: 20000101, end: 20040101
  36. TRAZODONE HCL [Concomitant]
     Dates: start: 20090217

REACTIONS (6)
  - DIABETES MELLITUS [None]
  - DIABETES MELLITUS INADEQUATE CONTROL [None]
  - DIABETIC NEUROPATHY [None]
  - ERECTILE DYSFUNCTION [None]
  - TYPE 1 DIABETES MELLITUS [None]
  - TYPE 2 DIABETES MELLITUS [None]
